FAERS Safety Report 14410149 (Version 6)
Quarter: 2018Q2

REPORT INFORMATION
  Report Type: Spontaneous
  Country: US (occurrence: US)
  Receive Date: 20180119
  Receipt Date: 20180621
  Transmission Date: 20180711
  Serious: Yes (Hospitalization, Other)
  Sender: FDA-Public Use
  Company Number: US-PFIZER INC-2017512502

PATIENT
  Age: 71 Year
  Sex: Female

DRUGS (3)
  1. H.P. ACTHAR [Concomitant]
     Active Substance: CORTICOTROPIN
     Dosage: UNK, WEEKLY (ONCE WEEK FOR TWO WEEKS)
  2. H.P. ACTHAR [Concomitant]
     Active Substance: CORTICOTROPIN
     Dosage: UNK, 2X/WEEK (TWICE A WEEK)
  3. XELJANZ XR [Suspect]
     Active Substance: TOFACITINIB CITRATE
     Dosage: 11 MG, UNK
     Dates: start: 201704

REACTIONS (6)
  - Pneumonia viral [Unknown]
  - Nasopharyngitis [Unknown]
  - Influenza [Unknown]
  - Pain [Unknown]
  - Arthralgia [Unknown]
  - Nephropathy [Unknown]
